FAERS Safety Report 23415091 (Version 1)
Quarter: 2024Q1

REPORT INFORMATION
  Report Type: Spontaneous
  Country: US (occurrence: US)
  Receive Date: 20240118
  Receipt Date: 20240118
  Transmission Date: 20240409
  Serious: Yes (Hospitalization, Other)
  Sender: FDA-Public Use
  Company Number: US-BRISTOL-MYERS SQUIBB COMPANY-2024-008638

PATIENT
  Age: 74 Year

DRUGS (16)
  1. REVLIMID [Suspect]
     Active Substance: LENALIDOMIDE
     Indication: Plasma cell myeloma
     Route: 048
     Dates: start: 202206
  2. ORENCIA [Concomitant]
     Active Substance: ABATACEPT
     Dosage: ORENCIA 250 MG INJ VIAL
  3. POTASSIUM CHLORIDE [Concomitant]
     Active Substance: POTASSIUM CHLORIDE
     Dosage: POTASSIUM CHLORIDE 20 MEQ ER TABLET
  4. HYDRALAZINE [Concomitant]
     Active Substance: HYDRALAZINE HYDROCHLORIDE
     Dosage: (ORANGE)
  5. ELIQUIS [Concomitant]
     Active Substance: APIXABAN
  6. ACYCLOVIR [Concomitant]
     Active Substance: ACYCLOVIR
  7. PRALUENT [Concomitant]
     Active Substance: ALIROCUMAB
     Dosage: PRALUENT 150 MG / ML PEN INJ 2 X 1 ML
  8. BYSTOLIC [Concomitant]
     Active Substance: NEBIVOLOL HYDROCHLORIDE
  9. LOSARTAN [Concomitant]
     Active Substance: LOSARTAN
  10. ALPRAZOLAM [Concomitant]
     Active Substance: ALPRAZOLAM
  11. CLONIDINE [Concomitant]
     Active Substance: CLONIDINE
     Dosage: 24 HOURS WEEKLY PATCH
  12. PLAVIX [Concomitant]
     Active Substance: CLOPIDOGREL BISULFATE
  13. CARDIZEM [Concomitant]
     Active Substance: DILTIAZEM HYDROCHLORIDE
  14. OMEPRAZOLE [Concomitant]
     Active Substance: OMEPRAZOLE
  15. RANEXA [Concomitant]
     Active Substance: RANOLAZINE
  16. TRAMADOL [Concomitant]
     Active Substance: TRAMADOL\TRAMADOL HYDROCHLORIDE

REACTIONS (1)
  - Cerebrovascular accident [Unknown]

NARRATIVE: CASE EVENT DATE: 20240101
